FAERS Safety Report 25736825 (Version 1)
Quarter: 2025Q3

REPORT INFORMATION
  Report Type: Spontaneous
  Country: US (occurrence: US)
  Receive Date: 20250828
  Receipt Date: 20250828
  Transmission Date: 20251021
  Serious: No
  Sender: ROCHE
  Company Number: US-ROCHE-10000369131

PATIENT
  Age: 53 Year
  Sex: Female
  Weight: 54.43 kg

DRUGS (9)
  1. AVASTIN [Suspect]
     Active Substance: BEVACIZUMAB
     Indication: Diabetic retinopathy
     Route: 065
     Dates: start: 2007, end: 2022
  2. ROSUVASTATIN [Suspect]
     Active Substance: ROSUVASTATIN
     Indication: Blood cholesterol
     Route: 048
  3. GLIMEPIRIDE (M) [Concomitant]
     Indication: Diabetes mellitus
     Route: 048
  4. ACETAMINOPHEN [Concomitant]
     Active Substance: ACETAMINOPHEN
     Indication: Pain
     Route: 048
  5. AMITRIPTYLINE [Concomitant]
     Active Substance: AMITRIPTYLINE
     Dosage: NIGHT
     Route: 048
  6. ASPIRIN [Concomitant]
     Active Substance: ASPIRIN
     Dosage: THERAPY WAS ONGOING
     Route: 048
  7. LEVOTHYROXINE [Concomitant]
     Active Substance: LEVOTHYROXINE
     Indication: Graves^ disease
     Dosage: THERAPY WAS ONGOING
     Route: 048
  8. COENZYME Q10 [Concomitant]
     Active Substance: DIETARY SUPPLEMENT\UBIDECARENONE
     Dosage: THERAPY WAS ONGOING
     Route: 048
  9. HYDRALAZINE [Concomitant]
     Active Substance: HYDRALAZINE HYDROCHLORIDE
     Indication: Blood pressure measurement
     Dosage: THERAPY WAS ONGOING
     Route: 048
     Dates: start: 202504

REACTIONS (6)
  - Off label use [Unknown]
  - Peripheral arterial occlusive disease [Recovered/Resolved]
  - Ocular hyperaemia [Recovered/Resolved]
  - Burning sensation [Recovered/Resolved]
  - Foreign body sensation in eyes [Recovered/Resolved]
  - Lacrimation increased [Recovered/Resolved]

NARRATIVE: CASE EVENT DATE: 20070101
